FAERS Safety Report 7521153-2 (Version None)
Quarter: 2011Q2

REPORT INFORMATION
  Report Type: 
  Country: None (occurrence: None)
  Receive Date: 20110603
  Receipt Date: 20101208
  Transmission Date: 20111010
  Serious: Yes (Other)
  Sender: FDA-Public Use
  Company Number: US-BAYER-201038205NA

PATIENT
  Age: 56 Year
  Sex: Female
  Weight: 56.818 kg

DRUGS (3)
  1. ULTRAVIST 300 [Suspect]
     Indication: COMPUTERISED TOMOGRAM THORAX
  2. DIPHENHYDRAMINE HCL [Concomitant]
     Route: 042
     Dates: start: 20101022, end: 20101022
  3. ULTRAVIST 300 [Suspect]
     Indication: LUNG NEOPLASM
     Dosage: LEFT ANTECUBITAL USING POWER INJECTOR @ A RATE OF 3.0
     Route: 042
     Dates: start: 20101022, end: 20101022

REACTIONS (3)
  - NASAL CONGESTION [None]
  - OROPHARYNGEAL DISCOMFORT [None]
  - SNEEZING [None]
